FAERS Safety Report 4561258-1 (Version None)
Quarter: 2005Q1

REPORT INFORMATION
  Report Type: 
  Country: None (occurrence: None)
  Receive Date: 20050121
  Receipt Date: 20050113
  Transmission Date: 20050727
  Serious: Yes (Hospitalization)
  Sender: FDA-Public Use
  Company Number: 2005CG00112

PATIENT
  Age: 71 Year
  Sex: Male

DRUGS (8)
  1. TENORMIN [Suspect]
     Dosage: 50 MG QD PO
     Route: 048
     Dates: start: 20000615
  2. OMEPRAZOLE [Suspect]
     Dosage: 20 MG QD PO
     Route: 048
     Dates: start: 20020615
  3. NEORAL [Suspect]
     Dosage: 200 MG QD PO
     Route: 048
     Dates: start: 19960615
  4. CELLCEPT [Suspect]
     Dosage: 1000 MG BID PO
     Route: 048
     Dates: start: 20030615
  5. ZOCOR [Suspect]
     Dosage: 10 MG QD PO
     Route: 048
     Dates: start: 20000615
  6. ALLOPURINOL [Suspect]
     Dosage: 200 MG QD PO
     Route: 048
     Dates: start: 20010615
  7. BURINEX [Suspect]
     Dosage: 1 MG QD PO
     Route: 048
     Dates: start: 19990615
  8. SANDIMMUNE [Suspect]
     Dosage: 200 MG DAILY
     Dates: start: 19941101, end: 19960615

REACTIONS (6)
  - CENTRAL NERVOUS SYSTEM LYMPHOMA [None]
  - GENERAL PHYSICAL HEALTH DETERIORATION [None]
  - HEADACHE [None]
  - HYPOKINESIA [None]
  - SOMNOLENCE [None]
  - WEIGHT DECREASED [None]
